FAERS Safety Report 7492383-3 (Version None)
Quarter: 2011Q2

REPORT INFORMATION
  Report Type: 
  Country: None (occurrence: None)
  Receive Date: 20110519
  Receipt Date: 20110516
  Transmission Date: 20111010
  Serious: Yes (Death, Other)
  Sender: FDA-Public Use
  Company Number: US-PFIZER INC-2006117212

PATIENT
  Sex: Male

DRUGS (2)
  1. NEURONTIN [Suspect]
     Indication: BACK PAIN
     Dosage: 800 MG, 3X/DAY
     Route: 048
     Dates: start: 20000725, end: 20040904
  2. NEURONTIN [Suspect]
     Indication: ANGER

REACTIONS (11)
  - CARDIAC ARREST [None]
  - COMPLETED SUICIDE [None]
  - DRUG INEFFECTIVE [None]
  - PSYCHOTIC DISORDER [None]
  - AGGRESSION [None]
  - INSOMNIA [None]
  - PAIN [None]
  - DEPRESSION [None]
  - PARANOIA [None]
  - GUN SHOT WOUND [None]
  - AGITATION [None]
